FAERS Safety Report 5898274-3 (Version None)
Quarter: 2008Q3

REPORT INFORMATION
  Report Type: 
  Country: None (occurrence: None)
  Receive Date: 20080925
  Receipt Date: 20070814
  Transmission Date: 20090109
  Serious: No
  Sender: FDA-Public Use
  Company Number: A0670184A

PATIENT
  Age: 59 Year
  Sex: Female

DRUGS (10)
  1. WELLBUTRIN XL [Suspect]
     Indication: DEPRESSION
     Dosage: 150MG PER DAY
     Route: 048
     Dates: start: 20070716, end: 20070717
  2. WELLBUTRIN SR [Suspect]
     Indication: DEPRESSION
     Dosage: 100MG TWICE PER DAY
     Route: 048
     Dates: start: 20050101
  3. ALAVERT [Concomitant]
  4. LORATADINE [Concomitant]
  5. ARMOUR THYROID [Concomitant]
  6. CITRACAL WITH VITAMIN D [Concomitant]
  7. CALTRATE [Concomitant]
  8. ALBUTEROL [Concomitant]
  9. POTASSIUM GLUCONATE TAB [Concomitant]
  10. VITAMIN B-12 [Concomitant]

REACTIONS (4)
  - ERYTHEMA [None]
  - INSOMNIA [None]
  - PRURITUS [None]
  - RASH [None]
